FAERS Safety Report 20895999 (Version 1)
Quarter: 2022Q2

REPORT INFORMATION
  Report Type: Spontaneous
  Country: None (occurrence: CA)
  Receive Date: 20220531
  Receipt Date: 20220531
  Transmission Date: 20220721
  Serious: Yes (Other)
  Sender: FDA-Public Use
  Company Number: CA-B.Braun Medical Inc.-2129348

PATIENT
  Age: 67 Year
  Sex: Female

DRUGS (17)
  1. DEXTROSE MONOHYDRATE\THEOPHYLLINE\THEOPHYLLINE ANHYDROUS [Suspect]
     Active Substance: DEXTROSE MONOHYDRATE\THEOPHYLLINE\THEOPHYLLINE ANHYDROUS
  2. ASPIRIN [Suspect]
     Active Substance: ASPIRIN
  3. ACTONEL [Suspect]
     Active Substance: RISEDRONATE SODIUM
  4. ADVAIR DISKUS [Suspect]
     Active Substance: FLUTICASONE PROPIONATE\SALMETEROL XINAFOATE
  5. AMLODIPINE [Suspect]
     Active Substance: AMLODIPINE BESYLATE
  6. BECLOMETHASONE [Suspect]
     Active Substance: BECLOMETHASONE
  7. CALCIUM [Suspect]
     Active Substance: CALCIUM
  8. CIPROFLOXACIN [Suspect]
     Active Substance: CIPROFLOXACIN
  9. CLONAZEPAM [Suspect]
     Active Substance: CLONAZEPAM
  10. FOLIC ACID [Suspect]
     Active Substance: FOLIC ACID
  11. MOXIFLOXACIN [Suspect]
     Active Substance: MOXIFLOXACIN
  12. PREDNISONE [Suspect]
     Active Substance: PREDNISONE
  13. ROSUVASTATIN [Suspect]
     Active Substance: ROSUVASTATIN
  14. SINGULAIR [Suspect]
     Active Substance: MONTELUKAST SODIUM
  15. ACETAMINOPHEN\TRAMADOL [Suspect]
     Active Substance: ACETAMINOPHEN\TRAMADOL
  16. XOLAIR [Suspect]
     Active Substance: OMALIZUMAB
  17. CEFADROXIL [Concomitant]
     Active Substance: CEFADROXIL

REACTIONS (11)
  - Asthma [Unknown]
  - Chest pain [Unknown]
  - Cough [Unknown]
  - Drug hypersensitivity [Unknown]
  - Dyspnoea [Unknown]
  - Malaise [Unknown]
  - Nasal oedema [Unknown]
  - Pneumonia [Unknown]
  - Respiratory tract infection [Unknown]
  - Vomiting [Unknown]
  - Wheezing [Unknown]
